FAERS Safety Report 8094367-3 (Version None)
Quarter: 2012Q1

REPORT INFORMATION
  Report Type: 
  Country: None (occurrence: None)
  Receive Date: 20120130
  Receipt Date: 20120123
  Transmission Date: 20120608
  Serious: No
  Sender: FDA-Public Use
  Company Number: US-PFIZER INC-2011283223

PATIENT
  Age: 82 Year
  Sex: Female

DRUGS (2)
  1. LYRICA [Suspect]
     Indication: PAIN
     Dosage: 1 DF, SINGLE
  2. NORCO [Suspect]
     Dosage: 5/325 MG, UNK
     Route: 048

REACTIONS (3)
  - VOMITING [None]
  - NAUSEA [None]
  - DRUG INTOLERANCE [None]
